FAERS Safety Report 8155752-4 (Version None)
Quarter: 2012Q1

REPORT INFORMATION
  Report Type: 
  Country: None (occurrence: None)
  Receive Date: 20120215
  Receipt Date: 20120206
  Transmission Date: 20120608
  Serious: Yes (Life-Threatening)
  Sender: FDA-Public Use
  Company Number: 2012MA001723

PATIENT
  Age: 46 Year
  Sex: Female
  Weight: 70 kg

DRUGS (13)
  1. ATROPINE [Concomitant]
  2. TRAMADOL HYDROCHLORIDE [Suspect]
     Indication: PAIN
     Dosage: 100 MG;1X;IV
     Route: 042
  3. MIDAZOLAM [Concomitant]
  4. PROPOFOL [Concomitant]
  5. FENTANYL [Concomitant]
  6. SEVOFLURANE [Concomitant]
  7. PARECOXIB SODIUM [Concomitant]
  8. NEOSTIGMINE [Concomitant]
  9. SUXAMETHONIUM [Concomitant]
  10. RANITIDINE [Concomitant]
  11. METOCLOPRAMIDE [Concomitant]
  12. ROCURONIUM BROMIDE [Concomitant]
  13. ACETAMINOPHEN [Concomitant]

REACTIONS (5)
  - APNOEA [None]
  - UNRESPONSIVE TO STIMULI [None]
  - ANTICHOLINERGIC SYNDROME [None]
  - MYDRIASIS [None]
  - DEPRESSED LEVEL OF CONSCIOUSNESS [None]
